FAERS Safety Report 20667687 (Version 2)
Quarter: 2022Q2

REPORT INFORMATION
  Report Type: Spontaneous
  Country: JP (occurrence: JP)
  Receive Date: 20220404
  Receipt Date: 20220406
  Transmission Date: 20220720
  Serious: Yes (Death)
  Sender: FDA-Public Use
  Company Number: JP-TEVA-2022-JP-2023510

PATIENT
  Age: 95 Year
  Sex: Male

DRUGS (1)
  1. TRISENOX [Suspect]
     Active Substance: ARSENIC TRIOXIDE
     Route: 042
     Dates: start: 20210502, end: 20210504

REACTIONS (4)
  - Gastrointestinal perforation [Fatal]
  - Aortic dissection [Fatal]
  - Thrombosis [Fatal]
  - Cardiac failure [Fatal]

NARRATIVE: CASE EVENT DATE: 20210504
